FAERS Safety Report 25968597 (Version 1)
Quarter: 2025Q4

REPORT INFORMATION
  Report Type: Spontaneous
  Country: EU (occurrence: EU)
  Receive Date: 20251028
  Receipt Date: 20251028
  Transmission Date: 20260117
  Serious: Yes (Hospitalization)
  Sender: RANBAXY
  Company Number: EU-AFSSAPS-AVLY2025000248

PATIENT
  Age: 25 Year
  Sex: Female

DRUGS (3)
  1. PREGABALIN [Suspect]
     Active Substance: PREGABALIN
     Indication: Product used for unknown indication
     Dosage: UNK
     Route: 048
     Dates: end: 202506
  2. NITROUS OXIDE [Suspect]
     Active Substance: NITROUS OXIDE
     Indication: Product used for unknown indication
     Dosage: UNK
     Route: 055
     Dates: start: 2021, end: 202504
  3. TRAMADOL [Suspect]
     Active Substance: TRAMADOL
     Indication: Product used for unknown indication
     Dosage: 1200 MILLIGRAM, DAILY
     Route: 065
     Dates: end: 202504

REACTIONS (4)
  - Substance dependence [Unknown]
  - Paraesthesia [Recovering/Resolving]
  - Cognitive disorder [Recovering/Resolving]
  - Drug withdrawal maintenance therapy [Unknown]

NARRATIVE: CASE EVENT DATE: 20250301
